FAERS Safety Report 4269915-1 (Version None)
Quarter: 2004Q1

REPORT INFORMATION
  Report Type: 
  Country: None (occurrence: None)
  Receive Date: 20040112
  Receipt Date: 20040112
  Transmission Date: 20041129
  Serious: Yes (Hospitalization)
  Sender: FDA-Public Use
  Company Number: None

PATIENT
  Age: 79 Year
  Sex: Male

DRUGS (6)
  1. VERAPAMIL [Suspect]
     Indication: HYPERTENSION
     Dosage: 240 MG QD
  2. LISINOPRIL [Suspect]
     Indication: HYPERTENSION
     Dosage: 40 MG QD
  3. IBUPROFEN [Suspect]
     Indication: PAIN
     Dosage: 800 TID
  4. GLYBURIDE [Concomitant]
  5. LASIX [Concomitant]
  6. KCL TAB [Concomitant]

REACTIONS (4)
  - ASTHENIA [None]
  - BRADYCARDIA [None]
  - LETHARGY [None]
  - RENAL FAILURE ACUTE [None]
